FAERS Safety Report 4300539-3 (Version None)
Quarter: 2004Q1

REPORT INFORMATION
  Report Type: 
  Country: None (occurrence: None)
  Receive Date: 20040218
  Receipt Date: 20040205
  Transmission Date: 20041129
  Serious: Yes (Hospitalization)
  Sender: FDA-Public Use
  Company Number: 2004007674

PATIENT
  Age: 36 Year
  Sex: Female
  Weight: 104.3273 kg

DRUGS (13)
  1. ZOLOFT [Suspect]
     Indication: DEPRESSION
     Dosage: ORAL
     Route: 048
  2. ZOLOFT [Suspect]
     Indication: ILL-DEFINED DISORDER
     Dosage: ORAL
     Route: 048
  3. LISINOPRIL [Concomitant]
  4. ESOMEPRAZOLE (ESOMEPRAZOLE) [Concomitant]
  5. MORPHINE SULFATE [Concomitant]
  6. TIZANIDINE HCL [Concomitant]
  7. DIAZEPAM [Concomitant]
  8. METOCLOPRAMIDE [Concomitant]
  9. ESTRADIOL [Concomitant]
  10. CYANOCOBALAMIN (CYANOCOBALAMIN) [Concomitant]
  11. CENTRUM (VITAMINS NOS, MINERALS NOS) [Concomitant]
  12. TEA, GREEN (TEA, GREEN) [Concomitant]
  13. .. [Concomitant]

REACTIONS (10)
  - AGGRESSION [None]
  - AGITATION [None]
  - AMNESIA [None]
  - ANOREXIA [None]
  - CIRCADIAN RHYTHM SLEEP DISORDER [None]
  - DRUG INEFFECTIVE [None]
  - IRRITABILITY [None]
  - SCREAMING [None]
  - SELF-MEDICATION [None]
  - WEIGHT DECREASED [None]
